FAERS Safety Report 9025935 (Version 1)
Quarter: 2012Q4

REPORT INFORMATION
  Report Type: Spontaneous
  Country: US (occurrence: None)
  Receive Date: 20120921
  Receipt Date: 20120921
  Transmission Date: 20130627
  Serious: Yes (Hospitalization)
  Sender: FDA-Public Use
  Company Number: None

PATIENT
  Age: 59 Year
  Sex: Male

DRUGS (2)
  1. FENTANYL (UNKNOWN) [Suspect]
     Indication: PRODUCT USED FOR UNKNOWN INDICATION
  2. ALPRAZOLAM (ALPRAZOLAM) [Concomitant]

REACTIONS (9)
  - Leukoencephalopathy [None]
  - Hypoxia [None]
  - Myocardial infarction [None]
  - Pneumonia aspiration [None]
  - Rhabdomyolysis [None]
  - Renal failure acute [None]
  - Haemodialysis [None]
  - Overdose [None]
  - Respiratory acidosis [None]
